FAERS Safety Report 5447388-0 (Version None)
Quarter: 2007Q3

REPORT INFORMATION
  Report Type: 
  Country: None (occurrence: None)
  Receive Date: 20070910
  Receipt Date: 20070903
  Transmission Date: 20080115
  Serious: Yes (Life-Threatening)
  Sender: FDA-Public Use
  Company Number: ES-ALLERGAN-0709690US

PATIENT
  Sex: Male

DRUGS (4)
  1. ALPHAGAN [Suspect]
     Indication: POSTOPERATIVE CARE
     Dosage: 2 GTT, UNK
     Route: 047
     Dates: start: 20070620, end: 20070624
  2. ESTILSONA [Concomitant]
     Indication: POSTOPERATIVE CARE
     Dosage: 14 GTT, BID
     Route: 048
     Dates: start: 20070620
  3. COLIRCUSI CICLOPLEJICO [Concomitant]
     Indication: POSTOPERATIVE CARE
     Dosage: 1 GTT, BID
     Route: 047
     Dates: start: 20070620
  4. TOBRADEX [Concomitant]
     Indication: POSTOPERATIVE CARE
     Dosage: 14 GTT, BID
     Route: 047
     Dates: start: 20070620

REACTIONS (3)
  - BRADYCARDIA [None]
  - CYANOSIS [None]
  - HYPOTONIA [None]
